FAERS Safety Report 9103238 (Version 2)
Quarter: 2013Q2

REPORT INFORMATION
  Report Type: Spontaneous
  Country: SE (occurrence: SE)
  Receive Date: 20130218
  Receipt Date: 20130513
  Transmission Date: 20140414
  Serious: Yes (Other)
  Sender: FDA-Public Use
  Company Number: SE-ROCHE-1188419

PATIENT
  Age: 80 Year
  Sex: Male

DRUGS (13)
  1. TORADOL [Suspect]
     Indication: OSTEOARTHRITIS
     Dosage: DOSE STRENGTH: 30MG/ML
     Route: 065
  2. TORADOL [Suspect]
     Indication: KNEE ARTHROPLASTY
  3. ROPIVACAINE [Concomitant]
     Indication: OSTEOARTHRITIS
     Dosage: 150 ML (2 MG/ML)
     Route: 065
  4. ROPIVACAINE [Concomitant]
     Indication: KNEE ARTHROPLASTY
     Dosage: 20 ML (7.5MG/ML)
     Route: 065
  5. EPINEPHRINE [Concomitant]
     Indication: OSTEOARTHRITIS
     Dosage: 0.1 MG / ML
     Route: 065
  6. EPINEPHRINE [Concomitant]
     Indication: KNEE ARTHROPLASTY
  7. DIOVAN [Concomitant]
     Dosage: 1 PER 1 DAY
     Route: 048
  8. FELODIPINE [Concomitant]
     Route: 065
  9. EMCONCOR [Concomitant]
     Route: 065
  10. TEGRETOL [Concomitant]
     Route: 065
  11. SIMVASTATIN [Concomitant]
     Route: 065
  12. WARAN [Concomitant]
     Route: 065
  13. COUMADIN [Concomitant]
     Route: 065

REACTIONS (6)
  - Dizziness [Recovered/Resolved]
  - Hypotension [Recovered/Resolved]
  - Dehydration [Recovered/Resolved]
  - Acute prerenal failure [Recovered/Resolved]
  - Hydronephrosis [Recovered/Resolved]
  - Weight increased [Recovered/Resolved]
